FAERS Safety Report 11005028 (Version 1)
Quarter: 2015Q2

REPORT INFORMATION
  Report Type: Report from Study
  Country: CN (occurrence: CN)
  Receive Date: 20150409
  Receipt Date: 20150409
  Transmission Date: 20150821
  Serious: Yes (Hospitalization)
  Sender: FDA-Public Use
  Company Number: CN-ASTRAZENECA-2015SE14787

PATIENT
  Age: 44 Year
  Sex: Female
  Weight: 90 kg

DRUGS (4)
  1. ADALAT [Concomitant]
     Active Substance: NIFEDIPINE
     Indication: HYPERTENSION
  2. OTHER TWO DRUGS [Concomitant]
     Indication: HYPERTENSION
  3. BYETTA [Suspect]
     Active Substance: EXENATIDE
     Indication: DIABETES MELLITUS
     Route: 058
     Dates: start: 20141030, end: 20141130
  4. BYETTA [Suspect]
     Active Substance: EXENATIDE
     Indication: DIABETES MELLITUS
     Route: 058
     Dates: start: 20141130

REACTIONS (6)
  - Fatigue [Not Recovered/Not Resolved]
  - Decreased appetite [Recovering/Resolving]
  - Asthenia [Not Recovered/Not Resolved]
  - Weight decreased [Unknown]
  - Blood glucose increased [Recovered/Resolved]
  - Back pain [Not Recovered/Not Resolved]

NARRATIVE: CASE EVENT DATE: 20141030
